FAERS Safety Report 10190345 (Version 2)
Quarter: 2014Q2

REPORT INFORMATION
  Report Type: Spontaneous
  Country: AU (occurrence: AU)
  Receive Date: 20140522
  Receipt Date: 20140522
  Transmission Date: 20141212
  Serious: Yes (Other)
  Sender: FDA-Public Use
  Company Number: AU-BAXTER-2013BAX032289

PATIENT
  Age: 70 Year
  Sex: Male
  Weight: 80 kg

DRUGS (8)
  1. KIOVIG NORMAL IMMUNOGLOBULIN (HUMAN) 20G/200ML FOR INTRAVENOUS USE INJ [Suspect]
     Indication: PRODUCT USED FOR UNKNOWN INDICATION
     Route: 042
     Dates: start: 20131003, end: 20131003
  2. KIOVIG NORMAL IMMUNOGLOBULIN (HUMAN) 20G/200ML FOR INTRAVENOUS USE INJ [Suspect]
     Route: 042
     Dates: start: 20131009, end: 20131009
  3. KIOVIG NORMAL IMMUNOGLOBULIN (HUMAN) 20G/200ML FOR INTRAVENOUS USE INJ [Suspect]
     Route: 042
     Dates: start: 20130904, end: 20130904
  4. KIOVIG NORMAL IMMUNOGLOBULIN (HUMAN) 20G/200ML FOR INTRAVENOUS USE INJ [Suspect]
     Route: 042
     Dates: start: 20130808, end: 20130808
  5. PREDNISOLONE [Concomitant]
     Indication: PREMEDICATION
     Dosage: 24 HOURS PRIOR
     Route: 048
  6. PREDNISOLONE [Concomitant]
     Dosage: 12 HOURS PRIOR
     Route: 048
  7. PREDNISOLONE [Concomitant]
     Dosage: 30 MINUTES PRIOR
     Route: 048
  8. LORATADINE [Concomitant]
     Indication: PREMEDICATION
     Dosage: 30 MINUTES PRIOR
     Route: 048

REACTIONS (10)
  - Erythema [Recovered/Resolved]
  - Infusion related reaction [Recovered/Resolved with Sequelae]
  - Rash generalised [Recovered/Resolved with Sequelae]
  - Generalised erythema [Recovered/Resolved with Sequelae]
  - Pruritus [Unknown]
  - Erythema multiforme [Recovered/Resolved]
  - Rash [Recovered/Resolved]
  - Urticaria [Recovered/Resolved]
  - Urticaria [Recovered/Resolved]
  - Hypertension [Unknown]
